FAERS Safety Report 21037165 (Version 2)
Quarter: 2022Q3

REPORT INFORMATION
  Report Type: Spontaneous
  Country: US (occurrence: US)
  Receive Date: 20220703
  Receipt Date: 20220724
  Transmission Date: 20221026
  Serious: No
  Sender: FDA-Public Use
  Company Number: US-BRISTOL-MYERS SQUIBB COMPANY-USA-20210701214

PATIENT
  Age: 69 Year
  Sex: Male

DRUGS (3)
  1. POMALYST [Suspect]
     Active Substance: POMALIDOMIDE
     Indication: Plasma cell myeloma
     Dosage: FREQ:TAKE 1 CAPSULE BY MOUTH DAILY ON MONDAYS -FRIDAYS FOR 3 WEEKS ON, THEN 1 WEEK OFF.
     Route: 048
     Dates: start: 20201122
  2. POMALYST [Suspect]
     Active Substance: POMALIDOMIDE
     Route: 048
     Dates: start: 20180313
  3. POMALYST [Suspect]
     Active Substance: POMALIDOMIDE
     Dosage: FREQ: TAKE 1 CAPSULE BY MOUTH DAILY ON MONDAYS -FRIDAYS FOR 3 WEEKS ON, THEN 1 WEEK OFF
     Route: 048

REACTIONS (1)
  - Product dose omission issue [Unknown]
